FAERS Safety Report 21385905 (Version 1)
Quarter: 2022Q3

REPORT INFORMATION
  Report Type: Spontaneous
  Country: US (occurrence: US)
  Receive Date: 20220928
  Receipt Date: 20220928
  Transmission Date: 20221027
  Serious: Yes (Hospitalization, Other)
  Sender: FDA-Public Use
  Company Number: US-BION-010959

PATIENT
  Age: 16 Year
  Sex: Male

DRUGS (2)
  1. DIPHENHYDRAMINE [Suspect]
     Active Substance: DIPHENHYDRAMINE
     Indication: Product used for unknown indication
  2. ACETAMINOPHEN [Suspect]
     Active Substance: ACETAMINOPHEN
     Indication: Product used for unknown indication

REACTIONS (10)
  - Overdose [Unknown]
  - Toxicity to various agents [Unknown]
  - Agitation [Unknown]
  - Flushing [Unknown]
  - Tachycardia [Unknown]
  - Mydriasis [Unknown]
  - Disorientation [Unknown]
  - Hyperreflexia [Unknown]
  - Hypertonia [Unknown]
  - Clonus [Unknown]
